FAERS Safety Report 6989534-3 (Version None)
Quarter: 2010Q3

REPORT INFORMATION
  Report Type: 
  Country: None (occurrence: None)
  Receive Date: 20100916
  Receipt Date: 20100127
  Transmission Date: 20110219
  Serious: Yes (Other)
  Sender: FDA-Public Use
  Company Number: US-PFIZER INC-2010001106

PATIENT
  Sex: Female
  Weight: 61.688 kg

DRUGS (1)
  1. LYRICA [Suspect]
     Indication: FIBROMYALGIA
     Dosage: 50 MG, 1X/DAY
     Dates: start: 20091222, end: 20100127

REACTIONS (10)
  - BALANCE DISORDER [None]
  - BLOOD PRESSURE INCREASED [None]
  - CHEILITIS [None]
  - CONSTIPATION [None]
  - DRY MOUTH [None]
  - GINGIVITIS [None]
  - HEADACHE [None]
  - NUCHAL RIGIDITY [None]
  - PALPITATIONS [None]
  - SPUTUM RETENTION [None]
